FAERS Safety Report 9133668 (Version 2)
Quarter: 2013Q3

REPORT INFORMATION
  Report Type: Spontaneous
  Country: PT (occurrence: PT)
  Receive Date: 20130302
  Receipt Date: 20130827
  Transmission Date: 20140515
  Serious: Yes (Disabling, Other)
  Sender: FDA-Public Use
  Company Number: PT-TEVA-387829ISR

PATIENT
  Age: 44 Year
  Sex: Male
  Weight: 90 kg

DRUGS (9)
  1. SINTROM [Concomitant]
     Route: 048
  2. LASIX [Concomitant]
     Route: 048
  3. MYFENAX [Suspect]
     Indication: NEPHROTIC SYNDROME
     Route: 048
     Dates: start: 20110217
  4. ESOMEPRAZOL [Concomitant]
  5. ATACAND 32 MG [Concomitant]
     Route: 048
  6. CRESTOR 20 MG [Concomitant]
     Route: 048
  7. THYRAX [Concomitant]
     Route: 048
  8. EUTIROX [Concomitant]
     Route: 048
  9. RAMIPRIL [Concomitant]
     Route: 048

REACTIONS (5)
  - Diarrhoea [Not Recovered/Not Resolved]
  - Dyspepsia [Not Recovered/Not Resolved]
  - Headache [Not Recovered/Not Resolved]
  - Dehydration [Not Recovered/Not Resolved]
  - Flushing [Not Recovered/Not Resolved]
